FAERS Safety Report 6874166-8 (Version None)
Quarter: 2010Q3

REPORT INFORMATION
  Report Type: 
  Country: None (occurrence: None)
  Receive Date: 20100723
  Receipt Date: 20090523
  Transmission Date: 20110219
  Serious: No
  Sender: FDA-Public Use
  Company Number: US-PFIZER INC-2009199270

PATIENT
  Sex: Female
  Weight: 61.234 kg

DRUGS (5)
  1. CHANTIX [Suspect]
     Indication: SMOKING CESSATION THERAPY
     Dosage: UNK
     Dates: start: 20090324, end: 20090402
  2. NEXIUM [Concomitant]
     Dosage: 40 MG, 1X/DAY
     Route: 048
  3. DHEA [Concomitant]
     Dosage: 5 MG, 3X/DAY
     Route: 048
  4. XANAX [Concomitant]
     Dosage: 0.5 MG MORNING, 1 MG BEDTIME
     Route: 048
  5. LEXAPRO [Concomitant]
     Dosage: 40 MG, 1X/DAY
     Route: 048

REACTIONS (6)
  - ABNORMAL DREAMS [None]
  - ANXIETY [None]
  - INSOMNIA [None]
  - NERVOUSNESS [None]
  - RESTLESSNESS [None]
  - TERMINAL INSOMNIA [None]
